FAERS Safety Report 7466757-0 (Version None)
Quarter: 2011Q1

REPORT INFORMATION
  Report Type: 
  Country: None (occurrence: None)
  Receive Date: 20110328
  Receipt Date: 20110414
  Transmission Date: 20110831
  Serious: Yes (Other)
  Sender: FDA-Public Use
  Company Number: 030148

PATIENT
  Age: 42 Year
  Sex: Male

DRUGS (2)
  1. KEPPRA [Suspect]
     Indication: TEMPORAL LOBE EPILEPSY
     Dosage: (500 MG BID ORAL)
     Route: 048
     Dates: start: 20110301, end: 20110303
  2. ALEVITAN /00017401/ [Concomitant]

REACTIONS (2)
  - MENTAL DISORDER [None]
  - INCOHERENT [None]
